FAERS Safety Report 7507200-2 (Version None)
Quarter: 2011Q2

REPORT INFORMATION
  Report Type: 
  Country: None (occurrence: None)
  Receive Date: 20110526
  Receipt Date: 20110518
  Transmission Date: 20111010
  Serious: Yes (Hospitalization)
  Sender: FDA-Public Use
  Company Number: JP-CEPHALON-2011002610

PATIENT
  Sex: Male
  Weight: 69 kg

DRUGS (4)
  1. RITUXIMAB [Suspect]
     Route: 042
     Dates: start: 20101214, end: 20101214
  2. BENDAMUSTINE HCL [Suspect]
     Route: 042
     Dates: start: 20110120, end: 20110121
  3. BENDAMUSTINE HCL [Suspect]
     Indication: B-CELL LYMPHOMA
     Route: 042
     Dates: start: 20101215, end: 20101216
  4. RITUXIMAB [Suspect]
     Route: 042
     Dates: start: 20110120, end: 20110120

REACTIONS (2)
  - WHITE BLOOD CELL COUNT DECREASED [None]
  - CYTOMEGALOVIRUS INFECTION [None]
